FAERS Safety Report 13831427 (Version 3)
Quarter: 2018Q1

REPORT INFORMATION
  Report Type: Spontaneous
  Country: JP (occurrence: JP)
  Receive Date: 20170803
  Receipt Date: 20180122
  Transmission Date: 20180508
  Serious: Yes (Other)
  Sender: FDA-Public Use
  Company Number: JP-PURDUE-GBR-2017-0047492

PATIENT

DRUGS (2)
  1. MORPHINE HYDROCHLORIDE [Suspect]
     Active Substance: MORPHINE HYDROCHLORIDE
     Indication: FIBROMYALGIA
     Route: 064
  2. FENTANYL. [Concomitant]
     Active Substance: FENTANYL
     Indication: FIBROMYALGIA
     Route: 065

REACTIONS (6)
  - Foetal exposure during pregnancy [Unknown]
  - Irritability [Recovering/Resolving]
  - Exaggerated startle response [Unknown]
  - Autism spectrum disorder [Unknown]
  - Convulsion neonatal [Recovering/Resolving]
  - Drug withdrawal syndrome neonatal [Unknown]
